FAERS Safety Report 6296827-4 (Version None)
Quarter: 2009Q3

REPORT INFORMATION
  Report Type: 
  Country: None (occurrence: None)
  Receive Date: 20090804
  Receipt Date: 20090724
  Transmission Date: 20100115
  Serious: Yes (Other)
  Sender: FDA-Public Use
  Company Number: PHHY2009FR31196

PATIENT
  Age: 83 Year
  Sex: Female

DRUGS (5)
  1. ACLASTA [Suspect]
     Indication: OSTEOPOROSIS
     Dosage: 5 MG, UNK
     Dates: start: 20081212
  2. RIVOTRIL [Concomitant]
  3. TEMESTA [Concomitant]
  4. PREVISCAN [Concomitant]
     Indication: ARRHYTHMIA
  5. FLECAINIDE ACETATE [Concomitant]
     Indication: ARRHYTHMIA
     Dosage: UNK

REACTIONS (3)
  - BURNING SENSATION [None]
  - HALLUCINATION, VISUAL [None]
  - MYALGIA [None]
